FAERS Safety Report 14822276 (Version 5)
Quarter: 2019Q2

REPORT INFORMATION
  Report Type: Report from Study
  Country: AU (occurrence: CA)
  Receive Date: 20180427
  Receipt Date: 20190430
  Transmission Date: 20190711
  Serious: Yes (Other)
  Sender: FDA-Public Use
  Company Number: AU-PFIZER INC-2018169542

PATIENT
  Age: 73 Year
  Sex: Male
  Weight: 72 kg

DRUGS (10)
  1. DOCETAXEL. [Suspect]
     Active Substance: DOCETAXEL
     Indication: PROSTATE CANCER METASTATIC
     Dosage: 111 MG, UNK
     Route: 042
     Dates: start: 20170116, end: 20170501
  2. VITAMIN D [ERGOCALCIFEROL] [Concomitant]
     Active Substance: ERGOCALCIFEROL
     Indication: PROPHYLAXIS
     Dosage: 1000 IU, 1X/DAY
     Route: 048
     Dates: start: 20161031
  3. TEMAZEPAM. [Concomitant]
     Active Substance: TEMAZEPAM
     Indication: CHRONIC DISEASE
     Dosage: 30 MG, 1X/DAY
     Route: 048
     Dates: start: 20161103
  4. DEPO-MEDROL [Concomitant]
     Active Substance: METHYLPREDNISOLONE ACETATE
     Dosage: 40 MG, 1X/DAY
     Dates: start: 20170613, end: 20170613
  5. ENZALUTAMIDE [Suspect]
     Active Substance: ENZALUTAMIDE
     Indication: PROSTATE CANCER METASTATIC
     Dosage: 80 MG, 1X/DAY
     Route: 048
     Dates: start: 20161107, end: 20170709
  6. COVERSYL PLUS [INDAPAMIDE;PERINDOPRIL ERBUMINE] [Concomitant]
     Active Substance: INDAPAMIDE\PERINDOPRIL
     Indication: CHRONIC DISEASE
     Dosage: 1 DF (4/1.25MG TABLET), ONCE DAILY
     Route: 048
     Dates: start: 2006
  7. TYLENOL EXTRA STRENGTH [Concomitant]
     Active Substance: ACETAMINOPHEN
     Dosage: 1000 MG, CYCLIC(ONCE EVERY TWELVE HOURS)
     Route: 048
     Dates: start: 20170225
  8. LEUPRORELIN ACETATE [Suspect]
     Active Substance: LEUPROLIDE ACETATE
     Indication: PROSTATE CANCER METASTATIC
     Dosage: 22.5 MG, UNK
     Route: 058
     Dates: start: 20161102
  9. CALCIUM CARBONATE. [Concomitant]
     Active Substance: CALCIUM CARBONATE
     Indication: PROPHYLAXIS
     Dosage: 1000 MG, 1X/DAY
     Route: 048
     Dates: start: 20161031
  10. MARCAINE [Concomitant]
     Active Substance: BUPIVACAINE HYDROCHLORIDE
     Dosage: 2 CC, ONCE DAILY
     Dates: start: 20170613, end: 20170613

REACTIONS (1)
  - Pancreatic enzymes decreased [Not Recovered/Not Resolved]

NARRATIVE: CASE EVENT DATE: 20170710
